FAERS Safety Report 9461571 (Version 1)
Quarter: 2013Q3

REPORT INFORMATION
  Report Type: Spontaneous
  Country: CO (occurrence: CO)
  Receive Date: 20130816
  Receipt Date: 20130816
  Transmission Date: 20140515
  Serious: Yes (Other)
  Sender: FDA-Public Use
  Company Number: CO-PFIZER INC-2013237891

PATIENT
  Age: 81 Year
  Sex: Female

DRUGS (4)
  1. LYRICA [Suspect]
     Indication: GLOSSOPHARYNGEAL NEURALGIA
     Dosage: 75 MG, 2X/DAY
     Route: 048
     Dates: start: 201206
  2. LOSARTAN [Concomitant]
     Dosage: UNK
     Route: 048
  3. CALCIBON [Concomitant]
     Dosage: UNK
     Route: 048
  4. AMITRIPTYLINE [Concomitant]
     Dosage: UNK
     Route: 048

REACTIONS (1)
  - Tongue cancer recurrent [Not Recovered/Not Resolved]
